FAERS Safety Report 13263065 (Version 2)
Quarter: 2017Q1

REPORT INFORMATION
  Report Type: Spontaneous
  Country: MX (occurrence: MX)
  Receive Date: 20170223
  Receipt Date: 20170227
  Transmission Date: 20170428
  Serious: Yes (Death, Hospitalization, Other)
  Sender: FDA-Public Use
  Company Number: MX-NODEN PHARMA DAC-NOD-2017-000014

PATIENT
  Age: 63 Year
  Sex: Female
  Weight: 63 kg

DRUGS (6)
  1. RASILEZ [Suspect]
     Active Substance: ALISKIREN
     Indication: HYPERTENSION
     Dosage: 1 DF (300 MG), QD
     Route: 048
     Dates: start: 201511, end: 20170215
  2. ISORBID [Concomitant]
     Active Substance: ISOSORBIDE DINITRATE
     Indication: PRODUCT USED FOR UNKNOWN INDICATION
     Dosage: 40 MG
     Route: 065
     Dates: start: 201511, end: 20170215
  3. GLIMETAL [Concomitant]
     Indication: PRODUCT USED FOR UNKNOWN INDICATION
     Dosage: UNK
     Route: 065
     Dates: end: 20170203
  4. FIMASARTAN [Concomitant]
     Active Substance: FIMASARTAN
     Indication: PRODUCT USED FOR UNKNOWN INDICATION
     Dosage: UNK
     Route: 065
  5. INSULIN [Concomitant]
     Active Substance: INSULIN NOS
     Indication: PRODUCT USED FOR UNKNOWN INDICATION
     Dosage: UNK
     Route: 065
     Dates: start: 20170203
  6. CONCOR [Concomitant]
     Active Substance: BISOPROLOL FUMARATE
     Indication: PRODUCT USED FOR UNKNOWN INDICATION
     Dosage: 2.5 MG, UNKNOWN
     Route: 065
     Dates: start: 201501, end: 20170215

REACTIONS (13)
  - Inflammation [Fatal]
  - Fall [Unknown]
  - Drug prescribing error [Unknown]
  - Pneumonia [Recovered/Resolved]
  - Balance disorder [Unknown]
  - Peritonitis [Fatal]
  - Blood glucose increased [Fatal]
  - Blood potassium decreased [Unknown]
  - Muscular weakness [Unknown]
  - Sepsis [Fatal]
  - Respiratory arrest [Fatal]
  - Cough [Recovering/Resolving]
  - Pyrexia [Recovering/Resolving]

NARRATIVE: CASE EVENT DATE: 20170210
